FAERS Safety Report 16790715 (Version 2)
Quarter: 2019Q3

REPORT INFORMATION
  Report Type: Spontaneous
  Country: US (occurrence: US)
  Receive Date: 20190910
  Receipt Date: 20190925
  Transmission Date: 20191005
  Serious: No
  Sender: FDA-Public Use
  Company Number: US-PFIZER INC-2019389805

PATIENT
  Age: 69 Year
  Sex: Female
  Weight: 44.45 kg

DRUGS (6)
  1. VFEND [Suspect]
     Active Substance: VORICONAZOLE
     Indication: ASPERGILLUS INFECTION
     Dosage: 200 MG, 2X/DAY
     Route: 048
     Dates: start: 201903
  2. SPIRIVA [Concomitant]
     Active Substance: TIOTROPIUM BROMIDE MONOHYDRATE
     Indication: BRONCHIECTASIS
     Dosage: 18 UG, DAILY (18MCG 1 PUFF DAILY)
     Dates: start: 2016
  3. SPIRIVA [Concomitant]
     Active Substance: TIOTROPIUM BROMIDE MONOHYDRATE
     Indication: CHRONIC OBSTRUCTIVE PULMONARY DISEASE
  4. VFEND [Suspect]
     Active Substance: VORICONAZOLE
     Dosage: 200 MG, 1X/DAY (SHE TOOK ONLY ONE PILL ON TWO DIFFERENT DAYS)
  5. ADVAIR HFA [Concomitant]
     Active Substance: FLUTICASONE PROPIONATE\SALMETEROL XINAFOATE
     Indication: CHRONIC OBSTRUCTIVE PULMONARY DISEASE
     Dosage: UNK, 2X/DAY (250/50, 1 PUFF TWICE DAILY)
     Dates: start: 2014
  6. ADVAIR HFA [Concomitant]
     Active Substance: FLUTICASONE PROPIONATE\SALMETEROL XINAFOATE
     Indication: BRONCHIECTASIS
     Dosage: UNK
     Dates: start: 2009

REACTIONS (2)
  - Fungal infection [Unknown]
  - Intentional product misuse [Unknown]
